FAERS Safety Report 10017246 (Version 2)
Quarter: 2014Q1

REPORT INFORMATION
  Report Type: Report from Study
  Country: US (occurrence: US)
  Receive Date: 20140318
  Receipt Date: 20140318
  Transmission Date: 20141002
  Serious: Yes (Other)
  Sender: FDA-Public Use
  Company Number: PHEH2014US003146

PATIENT
  Age: 43 Year
  Sex: Female
  Weight: 72.56 kg

DRUGS (18)
  1. GILENYA [Suspect]
     Indication: MULTIPLE SCLEROSIS RELAPSE
     Dosage: 0.5 MG, QD
     Route: 048
     Dates: start: 20131206
  2. KLONOPIN [Concomitant]
     Dosage: 1 MG
  3. MAXALT [Concomitant]
     Dosage: 10 MG
  4. XANAX [Concomitant]
     Dosage: 0.5 MG, UNK
  5. SOMA [Concomitant]
     Dosage: 250 MG, UNK
  6. TOPAMAX [Concomitant]
     Dosage: 100 MG, UNK
  7. RITALIN [Concomitant]
     Dosage: 100 MG, UNK
  8. PROVENTIL [Concomitant]
     Dosage: 90 UG, UNK
  9. CARBAMAZEPIN [Concomitant]
     Dosage: 200 MG, UNK
  10. ECOTRIN [Concomitant]
     Dosage: 325 MG, UNK
  11. SEREVENT [Concomitant]
     Dosage: 50 UG, UNK
  12. MULTI-VIT [Concomitant]
  13. VIT. E [Concomitant]
     Dosage: 100 U, UNK
  14. AMANTADINE [Concomitant]
     Dosage: 100 MG, UNK
  15. VIT D [Concomitant]
     Dosage: 400 U, UNK
  16. VITAMIN B COMPLEX [Concomitant]
  17. TYLENOL [Concomitant]
     Dosage: 25 MG, UNK
  18. TYLENOL [Concomitant]
     Dosage: 500 MG, UNK

REACTIONS (6)
  - Glaucoma [Not Recovered/Not Resolved]
  - Visual impairment [Unknown]
  - Vision blurred [Unknown]
  - Epistaxis [Not Recovered/Not Resolved]
  - Disturbance in attention [Unknown]
  - Memory impairment [Unknown]
